FAERS Safety Report 7324272-9 (Version None)
Quarter: 2011Q1

REPORT INFORMATION
  Report Type: 
  Country: None (occurrence: None)
  Receive Date: 20110301
  Receipt Date: 20110221
  Transmission Date: 20110831
  Serious: Yes (Death, Hospitalization, Other)
  Sender: FDA-Public Use
  Company Number: US-AMGEN-QUU376030

PATIENT
  Age: 60 Year
  Sex: Female

DRUGS (2)
  1. ENBREL [Suspect]
     Dates: start: 19980401, end: 20091101
  2. ENBREL [Suspect]
     Indication: RHEUMATOID ARTHRITIS
     Dosage: 50 MG, QWK
     Dates: start: 19980401, end: 20091101

REACTIONS (7)
  - UNRESPONSIVE TO STIMULI [None]
  - AMMONIA INCREASED [None]
  - SEPTIC SHOCK [None]
  - RENAL FAILURE [None]
  - MECHANICAL VENTILATION [None]
  - BILIARY CIRRHOSIS PRIMARY [None]
  - CATARACT [None]
